FAERS Safety Report 4504464-4 (Version None)
Quarter: 2004Q4

REPORT INFORMATION
  Report Type: 
  Country: None (occurrence: None)
  Receive Date: 20041118
  Receipt Date: 20041011
  Transmission Date: 20050328
  Serious: Yes (Life-Threatening, Disabling)
  Sender: FDA-Public Use
  Company Number: US-MERCK-0410USA01664

PATIENT
  Age: 35 Year
  Sex: Female

DRUGS (2)
  1. VIOXX [Suspect]
     Indication: PAIN
     Route: 048
     Dates: start: 20000101, end: 20040930
  2. DARVOCET-N 100 [Concomitant]
     Route: 065

REACTIONS (2)
  - CHEST PAIN [None]
  - FLANK PAIN [None]
